FAERS Safety Report 24460169 (Version 1)
Quarter: 2024Q4

REPORT INFORMATION
  Report Type: Report from Study
  Country: US (occurrence: US)
  Receive Date: 20241018
  Receipt Date: 20241018
  Transmission Date: 20250115
  Serious: No
  Sender: ROCHE
  Company Number: US-ROCHE-3558565

PATIENT
  Age: 55 Year
  Sex: Female

DRUGS (2)
  1. RITUXAN [Suspect]
     Active Substance: RITUXIMAB
     Indication: Immune thrombocytopenia
     Dosage: INFUSE 649MG IV IN 0.9%ML NS 500ML OVER 3 HOURS?DATE OF SERVICE: 09/APR/2024, 17/APR/2024, 24/APR/20
     Route: 041
  2. PRIVIGEN [Concomitant]
     Active Substance: HUMAN IMMUNOGLOBULIN G

REACTIONS (2)
  - Off label use [Unknown]
  - No adverse event [Unknown]
